FAERS Safety Report 16598637 (Version 2)
Quarter: 2019Q3

REPORT INFORMATION
  Report Type: Spontaneous
  Country: GR (occurrence: GR)
  Receive Date: 20190719
  Receipt Date: 20190729
  Transmission Date: 20191004
  Serious: Yes (Other)
  Sender: FDA-Public Use
  Company Number: GR-ELI_LILLY_AND_COMPANY-GR201907009445

PATIENT
  Age: 73 Year
  Sex: Female

DRUGS (2)
  1. PREDNISONE. [Suspect]
     Active Substance: PREDNISONE
     Indication: FOLLICULAR DENDRITIC CELL SARCOMA
     Dosage: UNK, UNKNOWN
     Route: 065
  2. GEMCITABINE HYDROCHLORIDE. [Suspect]
     Active Substance: GEMCITABINE HYDROCHLORIDE
     Indication: FOLLICULAR DENDRITIC CELL SARCOMA
     Dosage: UNK, UNKNOWN
     Route: 042

REACTIONS (3)
  - Corneal perforation [Recovered/Resolved]
  - Off label use [Unknown]
  - Paraneoplastic pemphigus [Unknown]
